FAERS Safety Report 7715067-2 (Version None)
Quarter: 2011Q3

REPORT INFORMATION
  Report Type: 
  Country: None (occurrence: None)
  Receive Date: 20110822
  Receipt Date: 20110815
  Transmission Date: 20111222
  Serious: Yes (Hospitalization, Other)
  Sender: FDA-Public Use
  Company Number: AUR-APL-2011-04688

PATIENT
  Sex: Female

DRUGS (2)
  1. NILOTINIB(NILOTINIB) [Suspect]
     Indication: PRODUCT USED FOR UNKNOWN INDICATION
  2. SIMVASTATIN [Suspect]
     Indication: PRODUCT USED FOR UNKNOWN INDICATION

REACTIONS (4)
  - FLUID RETENTION [None]
  - WEIGHT INCREASED [None]
  - CARDIAC DISORDER [None]
  - DRUG INTERACTION [None]
